FAERS Safety Report 7730223-5 (Version None)
Quarter: 2011Q3

REPORT INFORMATION
  Report Type: 
  Country: None (occurrence: None)
  Receive Date: 20110906
  Receipt Date: 20110901
  Transmission Date: 20111222
  Serious: Yes (Hospitalization)
  Sender: FDA-Public Use
  Company Number: PHHY2011US37094

PATIENT
  Sex: Female
  Weight: 68.027 kg

DRUGS (7)
  1. GILENYA [Suspect]
     Indication: MULTIPLE SCLEROSIS
     Dosage: 0.5 MG, QD
     Route: 048
     Dates: start: 20110420
  2. SINGULAIR [Concomitant]
     Dosage: UNK
     Route: 048
  3. VICODIN [Concomitant]
     Dosage: UNK
     Route: 048
  4. BACLOFEN [Concomitant]
     Dosage: UNK
     Route: 048
  5. ZOLOFT [Concomitant]
     Dosage: UNK
     Route: 048
  6. IBUPROFEN [Concomitant]
     Dosage: UNK
     Route: 048
  7. VALTREX [Concomitant]
     Dosage: UNK
     Route: 048

REACTIONS (5)
  - MULTIPLE SCLEROSIS [None]
  - MIGRAINE [None]
  - SYNCOPE [None]
  - FATIGUE [None]
  - DIZZINESS [None]
